FAERS Safety Report 17184516 (Version 1)
Quarter: 2019Q4

REPORT INFORMATION
  Report Type: Spontaneous
  Country: US (occurrence: US)
  Receive Date: 20191220
  Receipt Date: 20191220
  Transmission Date: 20200122
  Serious: No
  Sender: FDA-Public Use
  Company Number: US-PFIZER INC-2019544915

PATIENT
  Age: 85 Year
  Sex: Male
  Weight: 96.62 kg

DRUGS (1)
  1. VYNDAQEL [Suspect]
     Active Substance: TAFAMIDIS MEGLUMINE
     Indication: CARDIAC AMYLOIDOSIS
     Dosage: 80 MG, 1X/DAY [FOUR PILLS EVERY DAY]
     Route: 048
     Dates: start: 20191114, end: 20191213

REACTIONS (1)
  - Body height decreased [Unknown]
